FAERS Safety Report 6904023-X (Version None)
Quarter: 2010Q3

REPORT INFORMATION
  Report Type: 
  Country: None (occurrence: None)
  Receive Date: 20100804
  Receipt Date: 20090224
  Transmission Date: 20110219
  Serious: Yes (Hospitalization)
  Sender: FDA-Public Use
  Company Number: US-PFIZER INC-2009165641

PATIENT
  Sex: Male
  Weight: 72.121 kg

DRUGS (4)
  1. LYRICA [Suspect]
     Indication: POST HERPETIC NEURALGIA
     Dosage: 300 MG, 2X/DAY
  2. SIMVASTATIN [Suspect]
  3. ALL OTHER THERAPEUTIC PRODUCTS [Suspect]
  4. VERAPAMIL HCL [Suspect]
     Indication: POST HERPETIC NEURALGIA

REACTIONS (1)
  - RHABDOMYOLYSIS [None]
